FAERS Safety Report 8978027 (Version 9)
Quarter: 2016Q3

REPORT INFORMATION
  Report Type: Spontaneous
  Country: FR (occurrence: FR)
  Receive Date: 20121220
  Receipt Date: 20160928
  Transmission Date: 20161109
  Serious: Yes (Life-Threatening, Hospitalization, Disabling, Other)
  Sender: FDA-Public Use
  Company Number: FR-ASTRAZENECA-2012SE93778

PATIENT
  Age: 7521 Day
  Sex: Male

DRUGS (46)
  1. TERCIAN [Suspect]
     Active Substance: CYAMEMAZINE
     Indication: SCHIZOPHRENIA
     Dates: start: 20121105, end: 20121106
  2. RISPERDAL [Suspect]
     Active Substance: RISPERIDONE
     Dosage: RISPERDAL CONSTA LP 50 MG/2ML, ONE INJECTION IN THE MORNING
     Dates: start: 20121012
  3. VALIUM [Concomitant]
     Active Substance: DIAZEPAM
     Indication: ANXIETY
     Dosage: 1 TABLET IN THE AFTERNOON
     Dates: start: 20121010
  4. NOZINAN [Concomitant]
     Active Substance: LEVOMEPROMAZINE
     Dosage: UNKNOWN
     Dates: start: 201211, end: 20121207
  5. TERCIAN [Suspect]
     Active Substance: CYAMEMAZINE
     Indication: SCHIZOPHRENIA
     Dosage: 100 DROPS IN THE AFTERNOON
     Dates: start: 20121013, end: 20121014
  6. TERCIAN [Suspect]
     Active Substance: CYAMEMAZINE
     Indication: SCHIZOPHRENIA
     Dosage: 2 TABLETS IN THE MORNING AND ONE TABLET IN THE AFTERNOON FROM
     Dates: start: 20121014, end: 20121104
  7. SUBUTEX [Suspect]
     Active Substance: BUPRENORPHINE HYDROCHLORIDE
     Indication: DRUG DEPENDENCE
     Route: 060
     Dates: start: 20121024, end: 20121104
  8. VALIUM [Concomitant]
     Active Substance: DIAZEPAM
     Indication: ANXIETY
     Dosage: 2 TABLETS IN THE MORNING AND ONE TABLET IN THE EVENING
     Dates: start: 20121025, end: 20121106
  9. NOZINAN [Concomitant]
     Active Substance: LEVOMEPROMAZINE
     Dosage: 100.0GTT UNKNOWN
     Dates: start: 20121011
  10. TERCIAN [Suspect]
     Active Substance: CYAMEMAZINE
     Indication: SCHIZOPHRENIA
     Dosage: 1 TABLET IN THE AFTERNOON
     Dates: start: 20121010
  11. TERCIAN [Suspect]
     Active Substance: CYAMEMAZINE
     Indication: SCHIZOPHRENIA
     Dates: start: 20121013, end: 20121013
  12. LEPTICUR [Suspect]
     Active Substance: TROPATEPINE HYDROCHLORIDE
     Indication: PARKINSONISM
     Route: 048
     Dates: start: 20120723
  13. DAFALGAN [Concomitant]
     Active Substance: ACETAMINOPHEN
     Dates: start: 20121010, end: 20121010
  14. TERCIAN [Suspect]
     Active Substance: CYAMEMAZINE
     Indication: SCHIZOPHRENIA
     Dosage: 2 TABLETS IN THE MORNING AND ONE TABLET IN THE AFTERNOON
     Dates: start: 20121011, end: 20121012
  15. TERCIAN [Suspect]
     Active Substance: CYAMEMAZINE
     Indication: SCHIZOPHRENIA
     Dates: start: 20121107, end: 20121107
  16. LEPTICUR [Suspect]
     Active Substance: TROPATEPINE HYDROCHLORIDE
     Indication: PARKINSONISM
     Route: 048
     Dates: start: 20121106, end: 20121111
  17. THERALENE [Suspect]
     Active Substance: TRIMEPRAZINE
     Indication: INSOMNIA
     Dates: start: 20121010, end: 20121111
  18. DOLIPRANE [Concomitant]
     Active Substance: ACETAMINOPHEN
     Dosage: 1.0G UNKNOWN
     Dates: start: 20121010
  19. DAFALGAN [Concomitant]
     Active Substance: ACETAMINOPHEN
     Dosage: 4 CAPSULES IN THE MORNING AND 2 CAPSULES IN THE AFTERNOON
     Dates: start: 20121011, end: 20121110
  20. ATARX [Concomitant]
     Dosage: 100, 1 DF DAILY
     Route: 048
  21. ETOMIDATE. [Concomitant]
     Active Substance: ETOMIDATE
     Indication: SEDATION
     Dates: start: 20121111
  22. TAZOCILLINE [Concomitant]
     Active Substance: PIPERACILLIN SODIUM\TAZOBACTAM SODIUM
  23. XEROQUEL [Suspect]
     Active Substance: QUETIAPINE FUMARATE
     Indication: SCHIZOPHRENIA
     Route: 048
     Dates: start: 20121107, end: 20121112
  24. TERCIAN [Suspect]
     Active Substance: CYAMEMAZINE
     Indication: SCHIZOPHRENIA
  25. SUBUTEX [Suspect]
     Active Substance: BUPRENORPHINE HYDROCHLORIDE
     Indication: DRUG DEPENDENCE
     Route: 060
     Dates: start: 20121017, end: 20121023
  26. RISPERDAL [Suspect]
     Active Substance: RISPERIDONE
     Dosage: ONE INJECTION IN THE MORNING
     Dates: start: 20121026
  27. HAVLANE [Concomitant]
     Active Substance: LOPRAZOLAM
     Indication: INSOMNIA
     Route: 048
     Dates: start: 20121018, end: 20121111
  28. TERCIAN [Suspect]
     Active Substance: CYAMEMAZINE
     Indication: SCHIZOPHRENIA
     Dosage: 2 TABLETS IN THE MORNING AND 1 TABLET IN THE AFTERNOON
     Dates: start: 20121107, end: 20121111
  29. RISPERDAL [Suspect]
     Active Substance: RISPERIDONE
     Route: 048
     Dates: start: 20120907
  30. VALIUM [Concomitant]
     Active Substance: DIAZEPAM
     Indication: ANXIETY
     Route: 048
     Dates: start: 20120907
  31. SPASFON [Concomitant]
     Active Substance: PHLOROGLUCINOL
     Dosage: 2.0DF UNKNOWN
     Dates: start: 20121010
  32. IMOVANE [Concomitant]
     Active Substance: ZOPICLONE
     Route: 048
  33. XEROQUEL [Suspect]
     Active Substance: QUETIAPINE FUMARATE
     Indication: SCHIZOPHRENIA
     Route: 048
     Dates: start: 20121026
  34. TERCIAN [Suspect]
     Active Substance: CYAMEMAZINE
     Indication: SCHIZOPHRENIA
     Dosage: 1 TABLET IN THE MORNING AND 1 TABLET IN THE AFTERNOON
     Dates: start: 20121105, end: 20121105
  35. SUBUTEX [Suspect]
     Active Substance: BUPRENORPHINE HYDROCHLORIDE
     Indication: DRUG DEPENDENCE
     Route: 060
     Dates: start: 20121108, end: 20121111
  36. THERALENE [Suspect]
     Active Substance: TRIMEPRAZINE
     Indication: INSOMNIA
     Route: 048
     Dates: start: 20120907
  37. VALIUM [Concomitant]
     Active Substance: DIAZEPAM
     Indication: ANXIETY
     Dosage: 2 TABLETS IN THE MORNING AND 2 TABLETS IN THE AFTERNOON
     Dates: start: 20121011, end: 20121017
  38. VALIUM [Concomitant]
     Active Substance: DIAZEPAM
     Indication: ANXIETY
     Dosage: 2 TABLETS IN THE MORNING, ONE TABLET IN THE AFTERNOON AND ONE TABLET IN THE EVENING
     Dates: start: 20121018, end: 20121024
  39. VALIUM [Concomitant]
     Active Substance: DIAZEPAM
     Indication: ANXIETY
     Dosage: 1 TABLET IN THE MORNING AND 1 TABLET IN THE EVENING
     Dates: start: 20121107, end: 20121111
  40. NOREPINEPHRINE [Concomitant]
     Active Substance: NOREPINEPHRINE\NOREPINEPHRINE BITARTRATE
  41. TERCIAN [Suspect]
     Active Substance: CYAMEMAZINE
     Indication: SCHIZOPHRENIA
     Dosage: 1 TABLET IN THE AFTERNOON
     Dates: start: 20121106, end: 20121106
  42. THERALENE [Suspect]
     Active Substance: TRIMEPRAZINE
     Indication: INSOMNIA
     Route: 048
     Dates: start: 20120727, end: 20121112
  43. RISPERDAL [Suspect]
     Active Substance: RISPERIDONE
     Dosage: SUSPICION OF ONE INJECTION IN THE MORNING
     Dates: start: 20121013, end: 20121016
  44. LEXOMIL [Concomitant]
     Active Substance: BROMAZEPAM
     Dosage: 1 TABLET IN THE AFTERNOON
     Dates: start: 20121018
  45. ZYPREXA [Concomitant]
     Active Substance: OLANZAPINE
     Dates: start: 20120723
  46. CELOCURINE [Concomitant]
     Active Substance: SUCCINYLCHOLINE CHLORIDE
     Indication: SEDATION
     Dates: start: 20121111

REACTIONS (15)
  - Gastrointestinal necrosis [Recovered/Resolved with Sequelae]
  - Oxygen saturation decreased [Unknown]
  - Blood pressure decreased [Unknown]
  - Aspiration [Unknown]
  - Pneumonia [Unknown]
  - Pleurisy [Unknown]
  - Megacolon [Unknown]
  - Malaise [Unknown]
  - Hallucination, auditory [Unknown]
  - Weight decreased [Recovered/Resolved with Sequelae]
  - Fear [Unknown]
  - Post-traumatic stress disorder [Recovered/Resolved with Sequelae]
  - Colitis ischaemic [Recovered/Resolved with Sequelae]
  - Multiple organ dysfunction syndrome [Unknown]
  - Large intestinal obstruction [Recovered/Resolved with Sequelae]

NARRATIVE: CASE EVENT DATE: 20121111
